FAERS Safety Report 9106325 (Version 3)
Quarter: 2013Q1

REPORT INFORMATION
  Report Type: Spontaneous
  Country: BR (occurrence: BR)
  Receive Date: 20130221
  Receipt Date: 20130315
  Transmission Date: 20140127
  Serious: Yes (Other)
  Sender: FDA-Public Use
  Company Number: BR-ABBOTT-13P-020-1052052-00

PATIENT
  Sex: Female
  Weight: 110 kg

DRUGS (7)
  1. HUMIRA [Suspect]
     Indication: PSORIATIC ARTHROPATHY
     Route: 058
     Dates: start: 20110201, end: 20121010
  2. HUMIRA [Suspect]
     Dates: start: 201302
  3. CAPTOPRIL [Concomitant]
     Indication: HYPERTENSION
     Route: 048
     Dates: end: 201302
  4. ALPROZOLAM [Concomitant]
     Indication: HYPERTENSION
     Route: 048
     Dates: start: 20130130
  5. HYDROCHLOROTHIAZIDE [Concomitant]
     Indication: FLUID RETENTION
     Route: 048
     Dates: end: 20121122
  6. PARACETAMOL [Concomitant]
     Indication: BONE PAIN
     Route: 048
     Dates: start: 20130130, end: 20130212
  7. PARACETAMOL [Concomitant]
     Route: 048
     Dates: start: 20130213

REACTIONS (11)
  - Eye disorder [Not Recovered/Not Resolved]
  - Hypoaesthesia [Unknown]
  - Musculoskeletal pain [Not Recovered/Not Resolved]
  - Arthralgia [Not Recovered/Not Resolved]
  - Arthralgia [Not Recovered/Not Resolved]
  - Eye irritation [Not Recovered/Not Resolved]
  - Psoriasis [Unknown]
  - Rheumatic disorder [Unknown]
  - Pain [Unknown]
  - Eye pain [Unknown]
  - Eye inflammation [Unknown]
